FAERS Safety Report 13619922 (Version 6)
Quarter: 2020Q1

REPORT INFORMATION
  Report Type: Report from Study
  Country: None (occurrence: CA)
  Receive Date: 20170607
  Receipt Date: 20200212
  Transmission Date: 20200409
  Serious: Yes (Hospitalization, Other)
  Sender: FDA-Public Use
  Company Number: CA-ABBVIE-17K-028-1995170-00

PATIENT
  Age: 51 Year
  Sex: Female

DRUGS (5)
  1. HUMIRA [Suspect]
     Active Substance: ADALIMUMAB
     Indication: CROHN^S DISEASE
     Route: 058
     Dates: start: 20070412
  2. PREDNISONE. [Suspect]
     Active Substance: PREDNISONE
     Indication: CROHN^S DISEASE
     Dosage: 60 MG THEN WEANING OFF
     Route: 065
     Dates: start: 201608, end: 2016
  3. HUMIRA [Suspect]
     Active Substance: ADALIMUMAB
     Route: 058
     Dates: start: 201801
  4. HUMIRA [Suspect]
     Active Substance: ADALIMUMAB
     Route: 058
     Dates: start: 201801
  5. DILAUDID [Suspect]
     Active Substance: HYDROMORPHONE HYDROCHLORIDE
     Indication: PAIN MANAGEMENT
     Dosage: AS NEEDED 3-4 PER DAY
     Route: 048

REACTIONS (14)
  - Fracture delayed union [Not Recovered/Not Resolved]
  - Osteoporosis [Not Recovered/Not Resolved]
  - Tremor [Not Recovered/Not Resolved]
  - Crohn^s disease [Recovered/Resolved]
  - Femur fracture [Recovering/Resolving]
  - Fall [Unknown]
  - Back pain [Unknown]
  - Back pain [Recovered/Resolved]
  - Hip fracture [Unknown]
  - Scoliosis [Not Recovered/Not Resolved]
  - Intervertebral disc compression [Unknown]
  - Somnolence [Not Recovered/Not Resolved]
  - Spinal operation [Unknown]
  - Patient-device incompatibility [Not Recovered/Not Resolved]

NARRATIVE: CASE EVENT DATE: 2016
